FAERS Safety Report 7257682-9 (Version None)
Quarter: 2011Q1

REPORT INFORMATION
  Report Type: 
  Country: None (occurrence: None)
  Receive Date: 20110129
  Receipt Date: 20100524
  Transmission Date: 20110831
  Serious: No
  Sender: FDA-Public Use
  Company Number: US-ABBOTT-10P-163-0646852-00

PATIENT
  Age: 35 Year
  Sex: Female

DRUGS (11)
  1. PEPCID [Concomitant]
     Indication: GASTROOESOPHAGEAL REFLUX DISEASE
  2. VITAMIN B-12 [Concomitant]
     Indication: PRODUCT USED FOR UNKNOWN INDICATION
  3. BENADRYL [Concomitant]
     Indication: INSOMNIA
  4. MELATONIN [Concomitant]
     Indication: INSOMNIA
  5. HUMIRA [Suspect]
     Indication: CROHN'S DISEASE
     Dates: start: 20100428
  6. FOLIC ACID [Concomitant]
     Indication: VITAMIN SUPPLEMENTATION
     Route: 048
  7. ATIVAN [Concomitant]
     Indication: INSOMNIA
  8. IMODIUM [Concomitant]
     Indication: DIARRHOEA
     Dosage: 1-2 X DAY PRN
  9. ZOLOFT [Concomitant]
     Indication: PRODUCT USED FOR UNKNOWN INDICATION
  10. ZYRTEC [Concomitant]
     Indication: HYPERSENSITIVITY
  11. TYLENOL EXTRA STRENGTH [Concomitant]
     Indication: PAIN

REACTIONS (2)
  - RASH PAPULAR [None]
  - PNEUMONIA BACTERIAL [None]
